FAERS Safety Report 19727586 (Version 1)
Quarter: 2021Q3

REPORT INFORMATION
  Report Type: Report from Study
  Country: US (occurrence: US)
  Receive Date: 20210819
  Receipt Date: 20210819
  Transmission Date: 20211014
  Serious: Yes (Hospitalization)
  Sender: FDA-Public Use
  Company Number: US-BAXTER-2021BAX025621

PATIENT
  Sex: Male
  Weight: 74.8 kg

DRUGS (12)
  1. CYTARABINE. [Suspect]
     Active Substance: CYTARABINE
     Dosage: 4TH COURSE, TOTAL DOSE OF CYTARABINE ADMINISTERED THIS COURSE WAS 1176 MG
     Route: 065
     Dates: end: 20210715
  2. THIOGUANINE [Suspect]
     Active Substance: THIOGUANINE
     Dosage: 4TH COURSE, TOTAL DOSE OF THIOGUANINE ADMINISTERED THIS COURSE WAS 780 MG
     Route: 065
     Dates: end: 20210716
  3. CYTARABINE. [Suspect]
     Active Substance: CYTARABINE
     Dosage: 2?3RD COURSE
     Route: 065
  4. CYCLOPHOSPHAMIDE FOR INJECTION, USP [Suspect]
     Active Substance: CYCLOPHOSPHAMIDE
     Dosage: 4TH COURSE, TOTAL DOSE OF CYCLOPHOSPHAMIDE ADMINISTERED THIS COURSE WAS 1960 MG
     Route: 065
     Dates: end: 20210706
  5. INOTUZUMAB OZOGAMICIN [Suspect]
     Active Substance: INOTUZUMAB OZOGAMICIN
     Indication: PRODUCT USED FOR UNKNOWN INDICATION
     Dosage: 1ST COURSE
     Route: 065
     Dates: start: 20201112
  6. THIOGUANINE [Suspect]
     Active Substance: THIOGUANINE
     Indication: PRODUCT USED FOR UNKNOWN INDICATION
     Dosage: 1ST COURSE
     Route: 065
     Dates: start: 20201112
  7. CYCLOPHOSPHAMIDE FOR INJECTION, USP [Suspect]
     Active Substance: CYCLOPHOSPHAMIDE
     Indication: PRODUCT USED FOR UNKNOWN INDICATION
     Dosage: 1ST COURSE
     Route: 065
     Dates: start: 20201112
  8. INOTUZUMAB OZOGAMICIN [Suspect]
     Active Substance: INOTUZUMAB OZOGAMICIN
     Dosage: 2?3RD COURSE
     Route: 065
  9. THIOGUANINE [Suspect]
     Active Substance: THIOGUANINE
     Dosage: 2?3RD COURSE
     Route: 065
  10. CYTARABINE. [Suspect]
     Active Substance: CYTARABINE
     Indication: PRODUCT USED FOR UNKNOWN INDICATION
     Dosage: 1ST COURSE
     Route: 065
     Dates: start: 20201112
  11. CYCLOPHOSPHAMIDE FOR INJECTION, USP [Suspect]
     Active Substance: CYCLOPHOSPHAMIDE
     Dosage: 2?3RD COURSE
     Route: 065
  12. INOTUZUMAB OZOGAMICIN [Suspect]
     Active Substance: INOTUZUMAB OZOGAMICIN
     Dosage: 4TH COURSE, TOTAL DOSE OF INOTUZUMAB OZOGAMICIN ADMINISTERED THIS COURSE WAS 6 MG
     Route: 065
     Dates: start: 20201223, end: 20210203

REACTIONS (1)
  - Epistaxis [Recovered/Resolved]

NARRATIVE: CASE EVENT DATE: 20210717
